FAERS Safety Report 7938971-9 (Version None)
Quarter: 2011Q4

REPORT INFORMATION
  Report Type: 
  Country: None (occurrence: None)
  Receive Date: 20111124
  Receipt Date: 20111121
  Transmission Date: 20120403
  Serious: No
  Sender: FDA-Public Use
  Company Number: US-PFIZER INC-2011284762

PATIENT
  Sex: Female
  Weight: 45.351 kg

DRUGS (4)
  1. GENOTROPIN [Suspect]
     Indication: GROWTH HORMONE DEFICIENCY
  2. SINGULAIR [Concomitant]
     Dosage: UNK
  3. SYNTHROID [Concomitant]
     Dosage: UNK
  4. GENOTROPIN [Suspect]
     Indication: PRADER-WILLI SYNDROME
     Dosage: UNK, 1X/DAY
     Route: 030
     Dates: start: 20000101, end: 20111001

REACTIONS (2)
  - HEADACHE [None]
  - INCORRECT ROUTE OF DRUG ADMINISTRATION [None]
